FAERS Safety Report 10382667 (Version 1)
Quarter: 2014Q3

REPORT INFORMATION
  Report Type: Spontaneous
  Country: US (occurrence: US)
  Receive Date: 20140813
  Receipt Date: 20140813
  Transmission Date: 20150326
  Serious: Yes (Hospitalization)
  Sender: FDA-Public Use
  Company Number: US-B.I. PHARMACEUTICALS,INC./RIDGEFIELD-2014-BI-36860BP

PATIENT
  Age: 60 Year
  Sex: Male

DRUGS (14)
  1. METFORMIN [Concomitant]
     Active Substance: METFORMIN HYDROCHLORIDE
     Dosage: 170 MG
     Route: 048
  2. NITRO-DUR [Concomitant]
     Active Substance: NITROGLYCERIN
     Dosage: 0.4 MG
     Route: 065
  3. LANTUS INSULIN [Concomitant]
     Dosage: STRENGTH: 20U SQ; DAILY DOSE: 40U SQ
     Route: 065
  4. GLIPIZIDE. [Concomitant]
     Active Substance: GLIPIZIDE
     Dosage: 80 MG
     Route: 048
  5. POTASSIUM [Concomitant]
     Active Substance: POTASSIUM
     Dosage: STRENGTH: 20MEQ; DAILY DOSE: 40MEQ
     Route: 048
  6. ASPIRIN. [Suspect]
     Active Substance: ASPIRIN
     Indication: ATRIAL FIBRILLATION
     Dosage: 81 MG
     Route: 065
     Dates: end: 20130131
  7. METOLAZONE. [Concomitant]
     Active Substance: METOLAZONE
     Dosage: 5 MG
     Route: 048
  8. DIGOXIN. [Concomitant]
     Active Substance: DIGOXIN
     Dosage: 0.125 MG
     Route: 048
  9. GLUCOSAMINE [Concomitant]
     Active Substance: GLUCOSAMINE
     Dosage: 500 MG
     Route: 048
  10. CLONIDINE. [Concomitant]
     Active Substance: CLONIDINE
     Dosage: 0.0286 MG
     Route: 065
  11. LASIX [Concomitant]
     Active Substance: FUROSEMIDE
     Dosage: 80 MG
     Route: 065
  12. PRADAXA [Suspect]
     Active Substance: DABIGATRAN ETEXILATE MESYLATE
     Indication: ATRIAL FIBRILLATION
     Dosage: 300 MG
     Route: 065
     Dates: end: 20130131
  13. METOPROLOL [Concomitant]
     Active Substance: METOPROLOL
     Dosage: 100 MG
     Route: 048
  14. QUINAPRIL [Concomitant]
     Active Substance: QUINAPRIL\QUINAPRIL HYDROCHLORIDE
     Dosage: 40 MG
     Route: 048

REACTIONS (5)
  - Renal failure acute [Unknown]
  - Fall [None]
  - Coagulopathy [Unknown]
  - Lower gastrointestinal haemorrhage [Recovered/Resolved]
  - Haemorrhagic anaemia [Unknown]

NARRATIVE: CASE EVENT DATE: 20130130
